FAERS Safety Report 6253304-4 (Version None)
Quarter: 2009Q3

REPORT INFORMATION
  Report Type: 
  Country: None (occurrence: None)
  Receive Date: 20090701
  Receipt Date: 20090630
  Transmission Date: 20100115
  Serious: Yes (Other)
  Sender: FDA-Public Use
  Company Number: AU-WYE-G03394509

PATIENT

DRUGS (1)
  1. ROBITUSSIN DX [Suspect]
     Dosage: LARGE AMOUNTS FROM 100ML-2500ML
     Route: 048

REACTIONS (2)
  - DRUG ABUSE [None]
  - INTENTIONAL OVERDOSE [None]
